FAERS Safety Report 9366838 (Version 1)
Quarter: 2013Q2

REPORT INFORMATION
  Report Type: Spontaneous
  Country: US (occurrence: US)
  Receive Date: 20130625
  Receipt Date: 20130625
  Transmission Date: 20140414
  Serious: Yes (Hospitalization)
  Sender: FDA-Public Use
  Company Number: US-GLAXOSMITHKLINE-A0779755A

PATIENT
  Age: 57 Year
  Sex: Male
  Weight: 112.3 kg

DRUGS (1)
  1. ROSIGLITAZONE MALEATE [Suspect]
     Indication: TYPE 2 DIABETES MELLITUS
     Dosage: 4MG UNKNOWN
     Route: 048
     Dates: end: 20070427

REACTIONS (5)
  - Myocardial infarction [Unknown]
  - Anxiety [Unknown]
  - Depression [Unknown]
  - Coronary artery disease [Unknown]
  - Angina unstable [Unknown]
